FAERS Safety Report 12902198 (Version 3)
Quarter: 2016Q4

REPORT INFORMATION
  Report Type: Spontaneous
  Country: US (occurrence: US)
  Receive Date: 20161102
  Receipt Date: 20161128
  Transmission Date: 20170207
  Serious: Yes (Hospitalization)
  Sender: FDA-Public Use
  Company Number: US-PFIZER INC-2016507571

PATIENT
  Age: 65 Year
  Sex: Female
  Weight: 66 kg

DRUGS (1)
  1. ESTRING [Suspect]
     Active Substance: ESTRADIOL
     Indication: VULVOVAGINAL DRYNESS
     Dosage: 2 MG, UNK (A RING)
     Dates: start: 20160925, end: 201610

REACTIONS (11)
  - Pelvic pain [Not Recovered/Not Resolved]
  - Vaginal discharge [Recovering/Resolving]
  - Vaginal erosion [Unknown]
  - Drug hypersensitivity [Recovering/Resolving]
  - Vulvovaginal pruritus [Recovering/Resolving]
  - Vaginal haemorrhage [Recovering/Resolving]
  - Vulvovaginal burning sensation [Recovering/Resolving]
  - Rash [Not Recovered/Not Resolved]
  - Malaise [Not Recovered/Not Resolved]
  - Vulvovaginal discomfort [Recovering/Resolving]
  - Dysuria [Not Recovered/Not Resolved]

NARRATIVE: CASE EVENT DATE: 201610
